FAERS Safety Report 7893084-X (Version None)
Quarter: 2011Q4

REPORT INFORMATION
  Report Type: 
  Country: None (occurrence: None)
  Receive Date: 20111104
  Receipt Date: 20111031
  Transmission Date: 20120403
  Serious: Yes (Other)
  Sender: FDA-Public Use
  Company Number: AU-ABBOTT-11P-008-0866676-00

PATIENT
  Age: 49 Year
  Sex: Male
  Weight: 80 kg

DRUGS (10)
  1. EFFEXOR XR [Suspect]
     Indication: PRODUCT USED FOR UNKNOWN INDICATION
  2. HYPERICUM PERFORATUM [Suspect]
     Indication: PRODUCT USED FOR UNKNOWN INDICATION
  3. VALPROIC ACID [Suspect]
     Indication: PRODUCT USED FOR UNKNOWN INDICATION
  4. PANTOPRAZOLE [Concomitant]
     Indication: PRODUCT USED FOR UNKNOWN INDICATION
  5. CAFFEINE CITRATE [Suspect]
     Indication: PRODUCT USED FOR UNKNOWN INDICATION
     Route: 048
  6. LITHIUM CITRATE [Suspect]
     Indication: PRODUCT USED FOR UNKNOWN INDICATION
  7. GLUCOSAMINE CHONDROITIN [Concomitant]
     Indication: PRODUCT USED FOR UNKNOWN INDICATION
  8. LEXAPRO [Suspect]
     Indication: PRODUCT USED FOR UNKNOWN INDICATION
  9. ALVESCO [Suspect]
     Indication: PRODUCT USED FOR UNKNOWN INDICATION
  10. ABILIFY [Suspect]
     Indication: PRODUCT USED FOR UNKNOWN INDICATION

REACTIONS (2)
  - PANIC ATTACK [None]
  - SUICIDAL IDEATION [None]
